FAERS Safety Report 15075333 (Version 1)
Quarter: 2018Q2

REPORT INFORMATION
  Report Type: Spontaneous
  Country: US (occurrence: US)
  Receive Date: 20180627
  Receipt Date: 20180627
  Transmission Date: 20180711
  Serious: Yes (Other)
  Sender: FDA-Public Use
  Company Number: US-SAOL THERAPEUTICS-2018SAO00350

PATIENT
  Age: 59 Year
  Sex: Female

DRUGS (11)
  1. LIPITOR [Concomitant]
     Active Substance: ATORVASTATIN CALCIUM
  2. TOPAMAX [Concomitant]
     Active Substance: TOPIRAMATE
  3. VIBERZI [Concomitant]
     Active Substance: ELUXADOLINE
  4. CLONIDINE. [Concomitant]
     Active Substance: CLONIDINE
  5. COMPOUNDED BACLOFEN [Suspect]
     Active Substance: BACLOFEN
     Dosage: 0.63 ?G, \DAY
     Route: 037
  6. MIDODRINE [Concomitant]
     Active Substance: MIDODRINE
  7. SYNTHROID [Concomitant]
     Active Substance: LEVOTHYROXINE SODIUM
  8. TRAZODONE [Concomitant]
     Active Substance: TRAZODONE HYDROCHLORIDE
  9. DILAUDID [Suspect]
     Active Substance: HYDROMORPHONE HYDROCHLORIDE
     Dosage: 5.63 ?G, \DAY
     Route: 037
  10. BUPIVACAINE. [Suspect]
     Active Substance: BUPIVACAINE
     Dosage: 0.126 MG, \DAY
     Route: 037
  11. NEURONTIN [Concomitant]
     Active Substance: GABAPENTIN

REACTIONS (7)
  - Device damage [Unknown]
  - Headache [Recovered/Resolved]
  - Fatigue [Recovered/Resolved]
  - Implant site extravasation [Recovered/Resolved]
  - Cerebrospinal fluid leakage [Recovered/Resolved]
  - Nausea [Recovered/Resolved]
  - Complication associated with device [Unknown]

NARRATIVE: CASE EVENT DATE: 201802
